FAERS Safety Report 6554027-4 (Version None)
Quarter: 2010Q1

REPORT INFORMATION
  Report Type: 
  Country: None (occurrence: None)
  Receive Date: 20100122
  Receipt Date: 20100106
  Transmission Date: 20100710
  Serious: Yes (Hospitalization)
  Sender: FDA-Public Use
  Company Number: 2010AC000024

PATIENT
  Age: 87 Year
  Sex: Female
  Weight: 68.0396 kg

DRUGS (12)
  1. DIGOXIN [Suspect]
  2. AMARYL [Concomitant]
  3. LISONPRIL [Concomitant]
  4. NORVASC [Concomitant]
  5. TAPAZOLE [Concomitant]
  6. PROVERA [Concomitant]
  7. LOPRESSOR [Concomitant]
  8. GLUCOPHAGE [Concomitant]
  9. INSULIN [Concomitant]
  10. FUROSEMIDE [Concomitant]
  11. ASPIRIN [Concomitant]
  12. PROTONIX [Concomitant]

REACTIONS (20)
  - ACUTE MYOCARDIAL INFARCTION [None]
  - ATRIAL FIBRILLATION [None]
  - BACK PAIN [None]
  - CARDIAC FAILURE CONGESTIVE [None]
  - DYSPNOEA [None]
  - ECONOMIC PROBLEM [None]
  - EMOTIONAL DISORDER [None]
  - EPIGASTRIC DISCOMFORT [None]
  - HERPES ZOSTER [None]
  - HYPOTENSION [None]
  - INCREASED UPPER AIRWAY SECRETION [None]
  - MULTIPLE INJURIES [None]
  - NAUSEA [None]
  - NOCTURIA [None]
  - PAIN [None]
  - PERICARDIAL RUB [None]
  - PLEURAL EFFUSION [None]
  - POLLAKIURIA [None]
  - TINNITUS [None]
  - VOMITING [None]
